FAERS Safety Report 5033821-5 (Version None)
Quarter: 2006Q2

REPORT INFORMATION
  Report Type: 
  Country: None (occurrence: None)
  Receive Date: 20060623
  Receipt Date: 20060622
  Transmission Date: 20061013
  Serious: Yes (Hospitalization, Other)
  Sender: FDA-Public Use
  Company Number: US-JNJFOC-20060501609

PATIENT
  Age: 60 Year
  Sex: Female

DRUGS (6)
  1. LEVAQUIN [Suspect]
     Indication: ASTHMA
     Route: 042
  2. ADVAIR DISKUS 100/50 [Suspect]
  3. ADVAIR DISKUS 100/50 [Suspect]
     Indication: ASTHMA
  4. STEROID [Concomitant]
  5. PROVENTAL [Concomitant]
  6. ATROVENT [Concomitant]

REACTIONS (2)
  - ELECTROCARDIOGRAM QT CORRECTED INTERVAL [None]
  - VENTRICULAR ARRHYTHMIA [None]
